FAERS Safety Report 5292918-5 (Version None)
Quarter: 2007Q2

REPORT INFORMATION
  Report Type: 
  Country: None (occurrence: None)
  Receive Date: 20070411
  Receipt Date: 20070406
  Transmission Date: 20071010
  Serious: Yes (Hospitalization)
  Sender: FDA-Public Use
  Company Number: FRWYE334403APR07

PATIENT
  Age: 45 Year
  Sex: Male

DRUGS (1)
  1. EFFEXOR [Suspect]
     Dosage: UNKNOWN
     Route: 048
     Dates: start: 20060801

REACTIONS (3)
  - CARDIAC ARREST [None]
  - FALL [None]
  - SUBDURAL HAEMATOMA [None]
